FAERS Safety Report 13962782 (Version 1)
Quarter: 2017Q3

REPORT INFORMATION
  Report Type: Spontaneous
  Country: US (occurrence: US)
  Receive Date: 20170912
  Receipt Date: 20170912
  Transmission Date: 20171128
  Serious: Yes (Life-Threatening)
  Sender: FDA-Public Use
  Company Number: None

PATIENT
  Age: 10 Month
  Sex: Female
  Weight: 7.65 kg

DRUGS (3)
  1. FERROUS SULFATE. [Concomitant]
     Active Substance: FERROUS SULFATE
  2. PREDNISOLONE SYRUP [Suspect]
     Active Substance: PREDNISOLONE
     Indication: ANAPHYLACTIC REACTION
     Dosage: ?          QUANTITY:5 ML;?
     Route: 048
     Dates: start: 20170906, end: 20170907
  3. FLUORIDE [Concomitant]
     Active Substance: SODIUM FLUORIDE

REACTIONS (1)
  - Anaphylactic reaction [None]

NARRATIVE: CASE EVENT DATE: 20170907
